FAERS Safety Report 8222840 (Version 3)
Quarter: 2013Q1

REPORT INFORMATION
  Report Type: Spontaneous
  Country: US (occurrence: US)
  Receive Date: 20111102
  Receipt Date: 20130204
  Transmission Date: 20140127
  Serious: No
  Sender: FDA-Public Use
  Company Number: US-AMGEN-USASP2011033796

PATIENT
  Age: 56 Year
  Sex: Female
  Weight: 81.63 kg

DRUGS (11)
  1. ENBREL [Suspect]
     Indication: RHEUMATOID ARTHRITIS
     Dosage: 50 MG, QWK
     Route: 058
     Dates: start: 20091001
  2. PREDNISONE [Concomitant]
     Dosage: 5 MG, UNK
  3. HYDROCHLOROTHIAZIDE [Concomitant]
  4. NEXIUM                             /01479302/ [Concomitant]
  5. XANAX [Concomitant]
  6. METHOTREXATE [Concomitant]
  7. FOLATE [Concomitant]
  8. FISH OIL [Concomitant]
  9. VITAMIN D /00107901/ [Concomitant]
  10. MULTIVITAMIN                       /00097801/ [Concomitant]
  11. TYLENOL EXTRA-STRENGTH [Concomitant]
     Dosage: UNK UNK, QD

REACTIONS (14)
  - Rhinorrhoea [Not Recovered/Not Resolved]
  - Increased upper airway secretion [Not Recovered/Not Resolved]
  - Upper-airway cough syndrome [Not Recovered/Not Resolved]
  - Joint crepitation [Not Recovered/Not Resolved]
  - Ear discomfort [Recovered/Resolved]
  - Hypersensitivity [Not Recovered/Not Resolved]
  - Eye pruritus [Not Recovered/Not Resolved]
  - Lacrimation increased [Not Recovered/Not Resolved]
  - Staphylococcal infection [Recovered/Resolved]
  - Sinusitis [Recovered/Resolved]
  - Injection site erythema [Not Recovered/Not Resolved]
  - Injection site pruritus [Not Recovered/Not Resolved]
  - Injection site haematoma [Not Recovered/Not Resolved]
  - Ear infection [Recovered/Resolved]
